FAERS Safety Report 10926354 (Version 5)
Quarter: 2015Q3

REPORT INFORMATION
  Report Type: Report from Study
  Country: US (occurrence: US)
  Receive Date: 20150318
  Receipt Date: 20150922
  Transmission Date: 20151125
  Serious: Yes (Death, Hospitalization, Other)
  Sender: FDA-Public Use
  Company Number: PHHO2015US003635

PATIENT
  Age: 61 Year
  Sex: Female
  Weight: 84.35 kg

DRUGS (18)
  1. VENLAFAXINE [Concomitant]
     Active Substance: VENLAFAXINE HYDROCHLORIDE
     Indication: FIBROMYALGIA
     Dosage: 150 MG, QD
     Route: 048
     Dates: start: 20140506
  2. OMEPRAZOLE. [Concomitant]
     Active Substance: OMEPRAZOLE
     Indication: GASTROOESOPHAGEAL REFLUX DISEASE
     Dosage: 20 MG, QD
     Route: 048
     Dates: start: 2000
  3. RESTASIS [Concomitant]
     Active Substance: CYCLOSPORINE
     Indication: DRY EYE
     Dosage: 1 DRP, BID (BOTH EYES)
     Route: 061
     Dates: start: 201305
  4. WELLBUTRIN [Concomitant]
     Active Substance: BUPROPION HYDROCHLORIDE
     Indication: FIBROMYALGIA
     Dosage: 300 MG, QD
     Route: 048
     Dates: start: 201111
  5. ALENDRONATE [Concomitant]
     Active Substance: ALENDRONATE SODIUM
     Indication: OSTEOPENIA
     Dosage: 70 MG, QW
     Route: 048
     Dates: start: 20140508
  6. AUGMENTIN [Concomitant]
     Active Substance: AMOXICILLIN\CLAVULANATE POTASSIUM
     Indication: SIALOADENITIS
     Dosage: 1 DF, TID
     Route: 048
     Dates: start: 20150227
  7. PREDNISONE. [Concomitant]
     Active Substance: PREDNISONE
     Indication: PSORIATIC ARTHROPATHY
     Dosage: 8 MG, QD
     Route: 048
     Dates: start: 20150127
  8. SODIUM CHLORIDE. [Concomitant]
     Active Substance: SODIUM CHLORIDE
     Indication: HYPONATRAEMIA
     Dosage: 1 DF, BID
     Route: 048
     Dates: start: 20150227, end: 20150303
  9. PROPANOL [Concomitant]
     Active Substance: PROPRANOLOL HYDROCHLORIDE
     Indication: ESSENTIAL TREMOR
     Dosage: 20 MG, BID
     Route: 048
     Dates: start: 20140925
  10. CALCIUM [Concomitant]
     Active Substance: CALCIUM
     Indication: OSTEOPENIA
     Dosage: 600 MG, BID
     Route: 048
     Dates: start: 20140508
  11. OMEPRAZOLE. [Concomitant]
     Active Substance: OMEPRAZOLE
     Indication: PEPTIC ULCER
  12. TEMAZEPAM. [Concomitant]
     Active Substance: TEMAZEPAM
     Indication: INSOMNIA
     Dosage: 15 MG, PRN
     Route: 048
  13. AIN457 [Suspect]
     Active Substance: SECUKINUMAB
     Indication: PSORIATIC ARTHROPATHY
     Dosage: 150 MG, UNK
     Route: 058
     Dates: start: 20140723, end: 20141210
  14. VICODIN [Concomitant]
     Active Substance: ACETAMINOPHEN\HYDROCODONE BITARTRATE
     Indication: PAIN
     Dosage: 325 MG (5/325), PRN
     Route: 048
     Dates: start: 20140603
  15. GABAPENTIN. [Concomitant]
     Active Substance: GABAPENTIN
     Indication: FIBROMYALGIA
     Dosage: 800 MG, TID
     Route: 048
     Dates: start: 201107
  16. BIOTENE [Concomitant]
     Indication: DRY MOUTH
     Dosage: UNK (PRN)
     Route: 061
     Dates: start: 201405
  17. AIN457 [Suspect]
     Active Substance: SECUKINUMAB
     Dosage: 150 MG, UNK
     Route: 058
     Dates: start: 20150107, end: 20150203
  18. ASPIRIN. [Concomitant]
     Active Substance: ASPIRIN
     Indication: PROPHYLAXIS
     Dosage: 81 MG, BID
     Route: 048
     Dates: start: 201010

REACTIONS (6)
  - Small cell lung cancer extensive stage [Fatal]
  - Metastases to central nervous system [Fatal]
  - Metastases to liver [Fatal]
  - Asthenia [Not Recovered/Not Resolved]
  - Metastases to spine [Fatal]
  - Pain [Not Recovered/Not Resolved]

NARRATIVE: CASE EVENT DATE: 20150306
